FAERS Safety Report 23934222 (Version 2)
Quarter: 2024Q2

REPORT INFORMATION
  Report Type: Spontaneous
  Country: US (occurrence: US)
  Receive Date: 20240603
  Receipt Date: 20240604
  Transmission Date: 20240716
  Serious: Yes (Life-Threatening, Hospitalization, Other)
  Sender: FDA-Public Use
  Company Number: US-GLENMARK PHARMACEUTICALS-2024GMK091230

PATIENT

DRUGS (1)
  1. LAMOTRIGINE [Suspect]
     Active Substance: LAMOTRIGINE
     Indication: Bipolar disorder
     Dosage: 21 GRAM (INGESTION) (FORMULATION: IMMEDIATE RELEASE TABLETS)
     Route: 048

REACTIONS (5)
  - Toxicity to various agents [Recovered/Resolved]
  - Drug level increased [Recovered/Resolved]
  - Overdose [Unknown]
  - Unresponsive to stimuli [Recovered/Resolved]
  - Arrhythmia [Recovered/Resolved]
